FAERS Safety Report 24212866 (Version 5)
Quarter: 2025Q3

REPORT INFORMATION
  Report Type: Report from Study
  Country: US (occurrence: US)
  Receive Date: 20240815
  Receipt Date: 20250714
  Transmission Date: 20251020
  Serious: Yes (Other)
  Sender: ROCHE
  Company Number: US-ROCHE-10000052105

PATIENT
  Age: 66 Year
  Sex: Female
  Weight: 106.59 kg

DRUGS (17)
  1. XOLAIR [Suspect]
     Active Substance: OMALIZUMAB
     Indication: Giant cell arteritis
     Route: 058
  2. XOLAIR [Suspect]
     Active Substance: OMALIZUMAB
     Indication: Polymyalgia rheumatica
  3. XOLAIR [Suspect]
     Active Substance: OMALIZUMAB
     Indication: Asthmatic crisis
  4. ACTEMRA [Suspect]
     Active Substance: TOCILIZUMAB
     Indication: Asthmatic crisis
     Dosage: 162/0.9ML
     Route: 058
  5. ACTEMRA [Suspect]
     Active Substance: TOCILIZUMAB
     Indication: Polymyalgia rheumatica
     Route: 058
  6. ACTEMRA [Suspect]
     Active Substance: TOCILIZUMAB
     Indication: Giant cell arteritis
  7. REPATHA [Concomitant]
     Active Substance: EVOLOCUMAB
  8. ESCITALOPRAM [Concomitant]
     Active Substance: ESCITALOPRAM OXALATE
     Route: 048
  9. XULTOPHY 100/3.6 [Concomitant]
     Active Substance: INSULIN DEGLUDEC\LIRAGLUTIDE
     Dosage: 100 UNITS-3.6 MG/ML
     Route: 058
  10. TELMISARTAN [Concomitant]
     Active Substance: TELMISARTAN
     Route: 048
  11. LEVOTHYROXINE [Concomitant]
     Active Substance: LEVOTHYROXINE
     Dosage: 50 MCG
     Route: 048
  12. SINGULAIR [Concomitant]
     Active Substance: MONTELUKAST SODIUM
  13. DULERA [Concomitant]
     Active Substance: FORMOTEROL FUMARATE DIHYDRATE\MOMETASONE FUROATE
     Dosage: 200 MCG-S MCG/ACTUATION HFA AEROSOL INHALER
     Route: 055
  14. ASPIRIN [Concomitant]
     Active Substance: ASPIRIN
     Route: 048
  15. MELOXICAM [Concomitant]
     Active Substance: MELOXICAM
     Route: 048
  16. DERMOTIC [Concomitant]
     Active Substance: FLUOCINOLONE ACETONIDE
     Dosage: INSTILL 5 DROPS BY OTIC ROUTE 2 TIMES EVERY DAY
  17. OMEPRAZOLE [Concomitant]
     Active Substance: OMEPRAZOLE
     Route: 048

REACTIONS (8)
  - Breast cancer [Recovered/Resolved]
  - Triple negative breast cancer [Recovered/Resolved]
  - Migraine [Unknown]
  - Hypertension [Unknown]
  - Anxiety [Unknown]
  - Diabetes mellitus [Unknown]
  - Psoriasis [Recovered/Resolved]
  - Asthma [Unknown]

NARRATIVE: CASE EVENT DATE: 20240701
